FAERS Safety Report 25645704 (Version 2)
Quarter: 2025Q3

REPORT INFORMATION
  Report Type: Other
  Country: GB (occurrence: GB)
  Receive Date: 20250805
  Receipt Date: 20250808
  Transmission Date: 20251021
  Serious: Yes (Other)
  Sender: Integrated Therapeutic Solutions
  Company Number: GB-Integrated Therapeutic Solutions Inc.-2181859

PATIENT
  Age: 59 Year
  Sex: Female

DRUGS (1)
  1. PYLERA [Suspect]
     Active Substance: BISMUTH SUBCITRATE POTASSIUM\METRONIDAZOLE\TETRACYCLINE HYDROCHLORIDE
     Indication: Product used for unknown indication
     Dates: start: 20250227

REACTIONS (2)
  - Rectal haemorrhage [Recovering/Resolving]
  - Vomiting [Recovering/Resolving]
